FAERS Safety Report 12177360 (Version 1)
Quarter: 2016Q1

REPORT INFORMATION
  Report Type: Spontaneous
  Country: JP (occurrence: JP)
  Receive Date: 20160314
  Receipt Date: 20160314
  Transmission Date: 20160526
  Serious: Yes (Hospitalization)
  Sender: FDA-Public Use
  Company Number: JP-TEVA-642026ISR

PATIENT
  Age: 3 Decade
  Sex: Male

DRUGS (1)
  1. MODIODAL TABLETS 100MG [Suspect]
     Active Substance: MODAFINIL
     Route: 048

REACTIONS (6)
  - Posterior reversible encephalopathy syndrome [Recovered/Resolved]
  - Intentional overdose [Unknown]
  - Subarachnoid haemorrhage [Recovered/Resolved]
  - Tachypnoea [Unknown]
  - Altered state of consciousness [Recovered/Resolved]
  - Carbon dioxide decreased [Unknown]
